FAERS Safety Report 12454971 (Version 1)
Quarter: 2016Q2

REPORT INFORMATION
  Report Type: Spontaneous
  Country: HR (occurrence: HR)
  Receive Date: 20160610
  Receipt Date: 20160610
  Transmission Date: 20160815
  Serious: Yes (Life-Threatening, Other)
  Sender: FDA-Public Use
  Company Number: HR-WEST-WARD PHARMACEUTICALS CORP.-HR-H14001-16-00859

PATIENT
  Age: 74 Year
  Sex: Female

DRUGS (5)
  1. MERONEM [Suspect]
     Active Substance: MEROPENEM
     Indication: CITROBACTER INFECTION
     Route: 042
     Dates: start: 20141118, end: 20141124
  2. CONTROLOC [Concomitant]
     Active Substance: PANTOPRAZOLE SODIUM
     Indication: PROPHYLAXIS AGAINST GASTROINTESTINAL ULCER
     Route: 042
     Dates: start: 20121027, end: 20141128
  3. FRAXIPARINE [Concomitant]
     Active Substance: NADROPARIN CALCIUM
     Indication: THROMBOSIS PROPHYLAXIS
     Route: 058
     Dates: start: 20131027, end: 20141128
  4. PIPERACILLIN/TAZOBACTAM PHARMASWISS [Suspect]
     Active Substance: PIPERACILLIN SODIUM\TAZOBACTAM SODIUM
     Indication: CITROBACTER INFECTION
     Route: 042
     Dates: start: 20141101, end: 20141115
  5. VANCOMYCIN [Suspect]
     Active Substance: VANCOMYCIN
     Indication: STAPHYLOCOCCAL INFECTION
     Route: 042
     Dates: start: 20141101, end: 20141122

REACTIONS (2)
  - Drug interaction [Not Recovered/Not Resolved]
  - Toxic epidermal necrolysis [Not Recovered/Not Resolved]

NARRATIVE: CASE EVENT DATE: 20141121
